FAERS Safety Report 16984513 (Version 1)
Quarter: 2019Q4

REPORT INFORMATION
  Report Type: Spontaneous
  Country: AU (occurrence: AU)
  Receive Date: 20191101
  Receipt Date: 20191101
  Transmission Date: 20200122
  Serious: Yes (Death, Hospitalization, Congenital Anomaly)
  Sender: FDA-Public Use
  Company Number: AU-ROCHE-2462062

PATIENT
  Sex: Male

DRUGS (2)
  1. MISOPROSTOL. [Concomitant]
     Active Substance: MISOPROSTOL
     Indication: INDUCED LABOUR
  2. TAMIFLU [Suspect]
     Active Substance: OSELTAMIVIR PHOSPHATE
     Indication: INFLUENZA
     Route: 064

REACTIONS (3)
  - Foetal death [Fatal]
  - Listeriosis [Unknown]
  - Maternal exposure during pregnancy [Unknown]
